FAERS Safety Report 9328329 (Version 1)
Quarter: 2013Q2

REPORT INFORMATION
  Report Type: Spontaneous
  Country: US (occurrence: US)
  Receive Date: 20130604
  Receipt Date: 20130604
  Transmission Date: 20140414
  Serious: No
  Sender: FDA-Public Use
  Company Number: US-SANOFI-AVENTIS-2012SA048297

PATIENT
  Age: 63 Year
  Sex: Female

DRUGS (5)
  1. LANTUS [Suspect]
     Indication: TYPE 2 DIABETES MELLITUS
     Route: 058
     Dates: start: 2011
  2. LANTUS [Suspect]
     Indication: TYPE 2 DIABETES MELLITUS
     Dosage: DOSE:65 UNIT(S)
     Route: 058
  3. SOLOSTAR [Suspect]
     Indication: TYPE 2 DIABETES MELLITUS
     Dates: start: 2011
  4. BYETTA [Suspect]
     Indication: TYPE 2 DIABETES MELLITUS
     Route: 065
     Dates: end: 2012
  5. EXENATIDE [Suspect]
     Indication: TYPE 2 DIABETES MELLITUS
     Route: 065

REACTIONS (3)
  - Sinusitis [Unknown]
  - Fungal infection [Unknown]
  - Hyperglycaemia [Recovered/Resolved]
